FAERS Safety Report 11938311 (Version 1)
Quarter: 2016Q1

REPORT INFORMATION
  Report Type: Spontaneous
  Country: US (occurrence: US)
  Receive Date: 20160122
  Receipt Date: 20160122
  Transmission Date: 20160526
  Serious: Yes (Other)
  Sender: FDA-Public Use
  Company Number: US-TEVA-626963USA

PATIENT
  Sex: Female

DRUGS (5)
  1. FUROSEMIDE. [Suspect]
     Active Substance: FUROSEMIDE
     Route: 065
  2. HYDROXYCHLOROQUINE [Suspect]
     Active Substance: HYDROXYCHLOROQUINE
     Route: 065
  3. REVATIO [Suspect]
     Active Substance: SILDENAFIL CITRATE
     Route: 065
  4. BENICAR [Suspect]
     Active Substance: OLMESARTAN MEDOXOMIL
     Route: 065
  5. VERAPAMIL [Suspect]
     Active Substance: VERAPAMIL HYDROCHLORIDE
     Route: 065

REACTIONS (14)
  - Hypocalcaemia [Unknown]
  - Anaemia [Unknown]
  - Chronic kidney disease [Unknown]
  - Respiratory distress [Unknown]
  - Eye infection [Unknown]
  - Skin warm [Unknown]
  - Hypertension [Unknown]
  - Peripheral swelling [Unknown]
  - Pneumonia [Unknown]
  - Haematochezia [Unknown]
  - Gout [Unknown]
  - Blood creatine increased [Unknown]
  - Cardiac failure congestive [Unknown]
  - Oedema [Unknown]
